FAERS Safety Report 17055958 (Version 1)
Quarter: 2019Q4

REPORT INFORMATION
  Report Type: Spontaneous
  Country: CA (occurrence: CA)
  Receive Date: 20191120
  Receipt Date: 20191120
  Transmission Date: 20200122
  Serious: Yes (Other)
  Sender: FDA-Public Use
  Company Number: CA-AUROBINDO-AUR-APL-2019-073974

PATIENT
  Age: 29 Year
  Sex: Female

DRUGS (6)
  1. CEFAZOLIN [Suspect]
     Active Substance: CEFAZOLIN
     Indication: ARTHRALGIA
  2. CEFTRIAXONE SODIUM. [Suspect]
     Active Substance: CEFTRIAXONE SODIUM
     Indication: ARTHRALGIA
  3. AMPICILLIN [Suspect]
     Active Substance: AMPICILLIN
     Indication: JOINT SWELLING
     Dosage: UNK
     Route: 065
  4. CEFAZOLIN [Suspect]
     Active Substance: CEFAZOLIN
     Indication: JOINT SWELLING
     Dosage: UNK
     Route: 065
  5. AMPICILLIN [Suspect]
     Active Substance: AMPICILLIN
     Indication: ARTHRALGIA
  6. CEFTRIAXONE SODIUM. [Suspect]
     Active Substance: CEFTRIAXONE SODIUM
     Indication: JOINT SWELLING
     Dosage: UNK
     Route: 065

REACTIONS (7)
  - Herpes simplex hepatitis [Unknown]
  - Peritoneal cloudy effluent [Unknown]
  - Sepsis [Unknown]
  - Hepatic necrosis [Unknown]
  - Hepatomegaly [Unknown]
  - Mycoplasma infection [Unknown]
  - Maternal exposure during pregnancy [Unknown]
